FAERS Safety Report 14695649 (Version 1)
Quarter: 2018Q1

REPORT INFORMATION
  Report Type: Report from Study
  Country: US (occurrence: US)
  Receive Date: 20180329
  Receipt Date: 20180329
  Transmission Date: 20180509
  Serious: Yes (Death)
  Sender: FDA-Public Use
  Company Number: US-TEVA-2018-US-874861

PATIENT
  Age: 15 Year
  Sex: Male
  Weight: 34.7 kg

DRUGS (5)
  1. POSACONAZOLE [Interacting]
     Active Substance: POSACONAZOLE
     Route: 065
  2. FLUDARABINE [Suspect]
     Active Substance: FLUDARABINE PHOSPHATE
     Indication: STEM CELL TRANSPLANT
     Dosage: 40 MG/M2 FROM DAY 2 TO DAY 5 PRIOR TO TRANSPLANT
     Route: 065
  3. BUSULFAN. [Interacting]
     Active Substance: BUSULFAN
     Dosage: FULL DOSE: 133MG (3.86MG/KG) OVER THREE HOURS EVERY 24 HOURS
     Route: 041
  4. BUSULFAN. [Interacting]
     Active Substance: BUSULFAN
     Indication: STEM CELL TRANSPLANT
     Dosage: TEST DOSE: 27.8MG (0.8MG/KG) OVER TWO HOURS FROM DAY 2 TO DAY 5 PRIOR TO TRANSPLANT
     Route: 041
  5. LEVETIRACETAM. [Concomitant]
     Active Substance: LEVETIRACETAM
     Route: 065

REACTIONS (4)
  - Pulmonary haemorrhage [Fatal]
  - Drug clearance decreased [Fatal]
  - Drug interaction [Fatal]
  - Venoocclusive liver disease [Fatal]
